FAERS Safety Report 6187897-2 (Version None)
Quarter: 2009Q2

REPORT INFORMATION
  Report Type: 
  Country: None (occurrence: None)
  Receive Date: 20090511
  Receipt Date: 20090504
  Transmission Date: 20091009
  Serious: Yes (Hospitalization)
  Sender: FDA-Public Use
  Company Number: GXKR2009DE05284

PATIENT
  Age: 66 Year
  Sex: Female

DRUGS (3)
  1. PREDNISOLONE [Suspect]
     Indication: POLYARTHRITIS
     Dosage: 10 MG, QD, ORAL
     Route: 048
     Dates: start: 20000101
  2. INDOMETHACIN [Concomitant]
  3. HIGROTONA (CHLORTALIDONE) [Concomitant]

REACTIONS (2)
  - HYPERGLYCAEMIA [None]
  - HYPOKALAEMIA [None]
